FAERS Safety Report 7343345-8 (Version None)
Quarter: 2011Q1

REPORT INFORMATION
  Report Type: 
  Country: None (occurrence: None)
  Receive Date: 20110228
  Receipt Date: 20110216
  Transmission Date: 20110831
  Serious: Yes (Other)
  Sender: FDA-Public Use
  Company Number: 2011SP006504

PATIENT
  Age: 77 Year
  Sex: Male

DRUGS (4)
  1. CLOPIDOGREL BISULFATE [Suspect]
     Indication: ANTIPLATELET THERAPY
     Dosage: 75 MG;QD;
  2. ACETYLSALICYLIC ACID [Concomitant]
  3. LORATADINE [Suspect]
     Indication: ANTIPLATELET THERAPY
     Dosage: 10 MG;QD;
  4. LORATADINE [Suspect]
     Indication: RASH
     Dosage: 10 MG;QD;

REACTIONS (2)
  - RASH [None]
  - THROMBOSIS IN DEVICE [None]
